FAERS Safety Report 24299098 (Version 1)
Quarter: 2024Q3

REPORT INFORMATION
  Report Type: Spontaneous
  Country: US (occurrence: None)
  Receive Date: 20240909
  Receipt Date: 20240909
  Transmission Date: 20241016
  Serious: Yes (Death)
  Sender: Public
  Company Number: None

PATIENT
  Sex: Male

DRUGS (10)
  1. TESTOPEL [Suspect]
     Active Substance: TESTOSTERONE
     Indication: Testicular failure
     Dosage: REQ: IMPLANT 10 PELLETS UNDER THE SKIN (SUBCUTANEOUS INJECTION) PER OFFICE VISIT EVERY 3 MONTHS?
     Route: 058
     Dates: start: 20160811
  2. ATORVASTATIN [Concomitant]
     Active Substance: ATORVASTATIN
  3. CELECOXIB [Concomitant]
     Active Substance: CELECOXIB
  4. FINASTERIDE [Concomitant]
     Active Substance: FINASTERIDE
  5. GLIMEPIRIDE [Concomitant]
     Active Substance: GLIMEPIRIDE
  6. LISINOPRIL [Concomitant]
     Active Substance: LISINOPRIL
  7. METFORMIN [Concomitant]
     Active Substance: METFORMIN HYDROCHLORIDE
  8. TAMSULOSIN [Concomitant]
     Active Substance: TAMSULOSIN
  9. TESTOPEL [Concomitant]
     Active Substance: TESTOSTERONE
  10. DEVICE [Concomitant]
     Active Substance: DEVICE

REACTIONS (1)
  - Death [None]
